FAERS Safety Report 6177794-0 (Version None)
Quarter: 2009Q2

REPORT INFORMATION
  Report Type: 
  Country: None (occurrence: None)
  Receive Date: 20090504
  Receipt Date: 20090422
  Transmission Date: 20091009
  Serious: Yes (Hospitalization)
  Sender: FDA-Public Use
  Company Number: JP-PFIZER INC-2009184362

PATIENT

DRUGS (4)
  1. AZULFIDINE [Suspect]
     Indication: RHEUMATOID ARTHRITIS
     Dosage: FREQUENCY: 2X/DAY, EVERY DAY;
     Route: 048
     Dates: start: 20090129, end: 20090311
  2. PREDONINE [Concomitant]
     Dosage: 5 MG, UNK
     Route: 048
     Dates: start: 20090129
  3. VOLTAREN [Concomitant]
     Dosage: 37.5 MG, 2X/DAY
     Route: 048
     Dates: start: 20090129, end: 20090314
  4. MUCOSTA [Concomitant]
     Route: 048
     Dates: start: 20090129, end: 20090311

REACTIONS (2)
  - GRANULOCYTOPENIA [None]
  - SEPSIS [None]
